FAERS Safety Report 23464909 (Version 2)
Quarter: 2024Q1

REPORT INFORMATION
  Report Type: Other
  Country: US (occurrence: None)
  Receive Date: 20240201
  Receipt Date: 20240205
  Transmission Date: 20240409
  Serious: Yes (Hospitalization)
  Sender: FDA-Public Use
  Company Number: US-ROCHE-3495570

PATIENT
  Sex: Female

DRUGS (1)
  1. OCREVUS [Suspect]
     Active Substance: OCRELIZUMAB
     Indication: Multiple sclerosis
     Dosage: LAST DOSE OF OCREVUS WAS ON 09/NOV/2023 OR 10/NOV/2023. NEXT DOSE OF OCREVUS WAS DUE TO BE ADMINISTE
     Route: 042

REACTIONS (5)
  - Joint range of motion decreased [Not Recovered/Not Resolved]
  - Gait disturbance [Recovered/Resolved]
  - Illness [Unknown]
  - COVID-19 [Unknown]
  - Depressed level of consciousness [Recovered/Resolved]
